FAERS Safety Report 22399090 (Version 2)
Quarter: 2023Q2

REPORT INFORMATION
  Report Type: Spontaneous
  Country: JP (occurrence: JP)
  Receive Date: 20230602
  Receipt Date: 20230615
  Transmission Date: 20230722
  Serious: Yes (Other)
  Sender: FDA-Public Use
  Company Number: JP-MYLANLABS-2023M1057070

PATIENT

DRUGS (3)
  1. SODIUM PICOSULFATE [Suspect]
     Active Substance: SODIUM PICOSULFATE
     Indication: Product used for unknown indication
     Dosage: UNK
     Route: 064
  2. MAGNESIUM OXIDE [Suspect]
     Active Substance: MAGNESIUM OXIDE
     Indication: Product used for unknown indication
     Dosage: UNK
     Route: 064
  3. CLOSTRIDIUM BUTYRICUM SPORES STRAIN M-55 [Suspect]
     Active Substance: CLOSTRIDIUM BUTYRICUM SPORES STRAIN M-55
     Indication: Product used for unknown indication
     Dosage: UNK
     Route: 064

REACTIONS (5)
  - Neonatal asphyxia [Unknown]
  - Foetal heart rate acceleration abnormality [Unknown]
  - Nonreassuring foetal heart rate pattern [Unknown]
  - Umbilical cord around neck [Unknown]
  - Foetal exposure during pregnancy [Unknown]
